FAERS Safety Report 6165545-5 (Version None)
Quarter: 2009Q2

REPORT INFORMATION
  Report Type: 
  Country: None (occurrence: None)
  Receive Date: 20090421
  Receipt Date: 20090421
  Transmission Date: 20091009
  Serious: Yes (Other)
  Sender: FDA-Public Use
  Company Number: None

PATIENT
  Age: 6 Day
  Sex: Female

DRUGS (1)
  1. LOPINAVIR AND RITONAVIR [Suspect]
     Indication: CONGENITAL HIV INFECTION
     Dosage: 300/75MG/M2/DOSE EVERY 12 HOURS PO
     Route: 048
     Dates: start: 20080820, end: 20080828

REACTIONS (4)
  - BRADYCARDIA NEONATAL [None]
  - CARDIAC ARREST NEONATAL [None]
  - ECHOCARDIOGRAM ABNORMAL [None]
  - HEART RATE DECREASED [None]
